FAERS Safety Report 5101445-7 (Version None)
Quarter: 2006Q3

REPORT INFORMATION
  Report Type: 
  Country: None (occurrence: None)
  Receive Date: 20060911
  Receipt Date: 20060831
  Transmission Date: 20061208
  Serious: Yes (Hospitalization)
  Sender: FDA-Public Use
  Company Number: FR-SANOFI-SYNTHELABO-A02200602217

PATIENT
  Age: 19 Month
  Sex: Female
  Weight: 10 kg

DRUGS (14)
  1. GRANOCYTE [Suspect]
     Indication: AGRANULOCYTOSIS
     Route: 042
     Dates: start: 20060524, end: 20060529
  2. FLUDARABINE [Suspect]
     Indication: ACUTE MYELOID LEUKAEMIA
     Route: 042
     Dates: start: 20060525, end: 20060529
  3. DAUNOXOME [Suspect]
     Indication: ACUTE MYELOID LEUKAEMIA
     Route: 042
     Dates: start: 20060525, end: 20060525
  4. ZOPHREN [Suspect]
     Indication: VOMITING
     Route: 048
     Dates: start: 20060523
  5. ZOPHREN [Suspect]
     Indication: NAUSEA
     Route: 048
     Dates: start: 20060523
  6. ARACYTINE [Suspect]
     Indication: ACUTE MYELOID LEUKAEMIA
     Route: 037
     Dates: start: 20060524, end: 20060524
  7. FASTURTEC [Suspect]
     Indication: GOUT
     Route: 042
     Dates: start: 20060519, end: 20060519
  8. FASTURTEC [Suspect]
     Route: 042
     Dates: start: 20060523, end: 20060523
  9. FASTURTEC [Suspect]
     Route: 042
     Dates: start: 20060526, end: 20060526
  10. FASTURTEC [Suspect]
     Dosage: UNK
     Route: 042
     Dates: start: 20060621, end: 20060621
  11. FASTURTEC [Suspect]
     Dosage: UNK
     Route: 042
     Dates: start: 20060625, end: 20060625
  12. BACTRIM [Concomitant]
     Dosage: UNK
     Route: 065
     Dates: start: 20060524
  13. PLITICAN [Concomitant]
     Dosage: UNK
     Route: 065
     Dates: start: 20060524
  14. CARDIOXANE [Concomitant]
     Dosage: UNK
     Route: 042
     Dates: start: 20060501, end: 20060501

REACTIONS (5)
  - CARDIAC ARREST [None]
  - CARDIAC FAILURE [None]
  - EJECTION FRACTION DECREASED [None]
  - INCORRECT DOSE ADMINISTERED [None]
  - INCORRECT DRUG ADMINISTRATION RATE [None]
